FAERS Safety Report 8825782 (Version 1)
Quarter: 2012Q4

REPORT INFORMATION
  Report Type: 
  Country: US (occurrence: US)
  Receive Date: 20121004
  Receipt Date: 20121004
  Transmission Date: 20130627
  Serious: Yes (Other)
  Sender: FDA-Public Use
  Company Number: US-ASTRAZENECA-2012SE74400

PATIENT
  Age: 70 Year
  Sex: Female
  Weight: 81.6 kg

DRUGS (6)
  1. TOPROL-XL [Suspect]
     Indication: BLOOD PRESSURE ABNORMAL
     Route: 048
     Dates: start: 2002
  2. TOPROL-XL [Suspect]
     Indication: BLOOD PRESSURE ABNORMAL
     Route: 048
     Dates: start: 2004, end: 2010
  3. TOPROL-XL [Suspect]
     Indication: BLOOD PRESSURE ABNORMAL
     Dosage: GENERIC
     Route: 048
     Dates: start: 2010, end: 2010
  4. TOPROL-XL [Suspect]
     Indication: BLOOD PRESSURE ABNORMAL
     Dosage: 100 MG DAILY AND CUT HALF 50 MG TWO TIMES A DAY
     Route: 048
     Dates: start: 2010
  5. SYNTHROID [Concomitant]
     Indication: HYPOTHYROIDISM
     Route: 048
     Dates: start: 1963
  6. MULTIVITAMIN [Concomitant]

REACTIONS (6)
  - Blood pressure increased [Recovered/Resolved]
  - Body height decreased [Unknown]
  - Presyncope [Recovered/Resolved]
  - Palpitations [Recovered/Resolved]
  - Off label use [Unknown]
  - Drug ineffective [Unknown]
